FAERS Safety Report 14161405 (Version 12)
Quarter: 2018Q2

REPORT INFORMATION
  Report Type: Report from Study
  Country: CA (occurrence: CA)
  Receive Date: 20171106
  Receipt Date: 20180426
  Transmission Date: 20180711
  Serious: Yes (Other)
  Sender: FDA-Public Use
  Company Number: CA-SA-2017SA074910

PATIENT
  Age: 32 Year
  Sex: Female

DRUGS (10)
  1. METHYLPREDNISOLONE. [Suspect]
     Active Substance: METHYLPREDNISOLONE
     Indication: PREMEDICATION
     Route: 042
     Dates: start: 20170418, end: 20170424
  2. GRAVOL [Suspect]
     Active Substance: DIMENHYDRINATE
     Indication: NAUSEA
     Route: 048
     Dates: start: 20170418
  3. ZANTAC [Concomitant]
     Active Substance: RANITIDINE HYDROCHLORIDE
     Indication: PREMEDICATION
     Route: 048
     Dates: start: 20170418, end: 20170424
  4. TYLENOL [Concomitant]
     Active Substance: ACETAMINOPHEN
     Indication: PREMEDICATION
     Route: 048
     Dates: start: 20170418
  5. REACTINE [CETIRIZINE HYDROCHLORIDE] [Concomitant]
     Active Substance: CETIRIZINE HYDROCHLORIDE
     Indication: PREMEDICATION
     Route: 048
     Dates: start: 20170418
  6. LEMTRADA [Suspect]
     Active Substance: ALEMTUZUMAB
     Indication: RELAPSING-REMITTING MULTIPLE SCLEROSIS
     Route: 041
     Dates: start: 20170418, end: 20170421
  7. LEMTRADA [Suspect]
     Active Substance: ALEMTUZUMAB
     Indication: RELAPSING-REMITTING MULTIPLE SCLEROSIS
     Route: 041
     Dates: start: 20170424, end: 20170424
  8. ACYCLOVIR. [Concomitant]
     Active Substance: ACYCLOVIR
     Indication: PREMEDICATION
     Route: 048
     Dates: start: 20170418
  9. ACETAMINOPHEN. [Concomitant]
     Active Substance: ACETAMINOPHEN
     Indication: PREMEDICATION
     Route: 048
     Dates: start: 20170418
  10. BENADRYL [Suspect]
     Active Substance: DIPHENHYDRAMINE HYDROCHLORIDE
     Indication: RASH ERYTHEMATOUS
     Route: 048
     Dates: start: 20170420

REACTIONS (45)
  - Neuralgia [Not Recovered/Not Resolved]
  - Headache [Recovered/Resolved]
  - Blood urine present [Recovered/Resolved]
  - Fatigue [Not Recovered/Not Resolved]
  - Fungal test positive [Unknown]
  - Lymphocyte count decreased [Recovered/Resolved]
  - Vomiting [Recovered/Resolved]
  - Pain [Not Recovered/Not Resolved]
  - Herpes zoster disseminated [Recovered/Resolved]
  - Erythema [Recovered/Resolved]
  - Muscle spasms [Recovered/Resolved]
  - Arthralgia [Recovered/Resolved]
  - Hypoaesthesia [Recovered/Resolved]
  - Crystalluria [Unknown]
  - Erythema [Recovered/Resolved]
  - Cells in urine [Not Recovered/Not Resolved]
  - Gingival bleeding [Recovered/Resolved]
  - Neutrophil percentage increased [Recovered/Resolved]
  - Pruritus generalised [Recovering/Resolving]
  - Back pain [Not Recovered/Not Resolved]
  - Bacterial test [Recovered/Resolved]
  - Abdominal pain [Recovered/Resolved]
  - Lymphocyte percentage decreased [Not Recovered/Not Resolved]
  - Contusion [Recovering/Resolving]
  - Back pain [Not Recovered/Not Resolved]
  - Insomnia [Not Recovered/Not Resolved]
  - Somnolence [Recovering/Resolving]
  - Urticaria [Recovered/Resolved]
  - White blood cell count decreased [Recovered/Resolved]
  - Nausea [Recovered/Resolved]
  - Skin disorder [Recovering/Resolving]
  - Pain in extremity [Recovered/Resolved]
  - Asthenia [Recovering/Resolving]
  - Menstruation irregular [Recovered/Resolved]
  - Acne [Recovered/Resolved]
  - Fatigue [Recovering/Resolving]
  - Infusion site pain [Recovered/Resolved]
  - Stress [Not Recovered/Not Resolved]
  - Cough [Recovering/Resolving]
  - Pain [Recovered/Resolved]
  - Swelling [Recovered/Resolved]
  - Feeling hot [Recovered/Resolved]
  - Muscle spasms [Recovered/Resolved]
  - Dizziness [Recovered/Resolved]
  - Herpes virus infection [Recovered/Resolved]

NARRATIVE: CASE EVENT DATE: 2017
